FAERS Safety Report 10811999 (Version 2)
Quarter: 2015Q1

REPORT INFORMATION
  Report Type: Spontaneous
  Country: IT (occurrence: None)
  Receive Date: 20150212
  Receipt Date: 20150226
  Transmission Date: 20150721
  Serious: Yes (Life-Threatening)
  Sender: FDA-Public Use
  Company Number: 2733914

PATIENT
  Age: 54 Year
  Sex: Female

DRUGS (10)
  1. RANITIDINE [Concomitant]
     Active Substance: RANITIDINE\RANITIDINE HYDROCHLORIDE
  2. EUTIROX [Concomitant]
     Active Substance: LEVOTHYROXINE SODIUM
  3. GRANULOCYTE COLONY STIMULATING FACTOR [Concomitant]
     Active Substance: GRANULOCYTE COLONY-STIMULATING FACTOR NOS
  4. CYCLOPHOSPHAMIDE. [Suspect]
     Active Substance: CYCLOPHOSPHAMIDE
     Indication: BREAST CANCER
     Dosage: 795 MG MILLIGRAM(S), CYCLICAL, INTRAVENOUS (NOT OTHERWISE SPECIFIED)
     Route: 042
     Dates: start: 20141017, end: 20141107
  5. DEXAMETHASONE DISODIUM PHOSPHATE [Concomitant]
     Active Substance: DEXAMETHASONE SODIUM PHOSPHATE
  6. EMEND [Concomitant]
     Active Substance: APREPITANT
  7. ALOXI [Concomitant]
     Active Substance: PALONOSETRON HYDROCHLORIDE
  8. OMEPRAZOLE. [Concomitant]
     Active Substance: OMEPRAZOLE
  9. FLUOROURACIL. [Suspect]
     Active Substance: FLUOROURACIL
     Indication: BREAST CANCER
     Dosage: 795 MG MILLIGRAM(S), CYCLICAL, INTRAVENOUS (NOT OTHERWISE SPECIFIED)
     Route: 042
     Dates: start: 20141017, end: 20141107
  10. EPIRUBICIN HYDROCHLORIDE. [Suspect]
     Active Substance: EPIRUBICIN HYDROCHLORIDE
     Indication: BREAST CANCER
     Dosage: 143 MG MILLIGRAM(S), CYCLICAL, INTRAVENOUS (NOT OTHERWISE SPECIFIE)?
     Route: 042
     Dates: start: 20141017, end: 20141107

REACTIONS (5)
  - Enteritis [None]
  - Colitis [None]
  - Septic shock [None]
  - Iatrogenic injury [None]
  - Pancytopenia [None]

NARRATIVE: CASE EVENT DATE: 20141115
